FAERS Safety Report 6934082-X (Version None)
Quarter: 2010Q3

REPORT INFORMATION
  Report Type: 
  Country: None (occurrence: None)
  Receive Date: 20100820
  Receipt Date: 20100812
  Transmission Date: 20110219
  Serious: Yes (Other)
  Sender: FDA-Public Use
  Company Number: FR-PFIZER INC-2010101423

PATIENT
  Age: 81 Year
  Sex: Female

DRUGS (2)
  1. TAHOR [Suspect]
     Dosage: 10 MG, UNK
     Dates: start: 20081101, end: 20100101
  2. CANDESARTAN CILEXETIL/HYDROCHLOROTHIAZIDE (ATACAND HCT) [Concomitant]
     Dosage: UNK

REACTIONS (1)
  - URINARY RETENTION [None]
